FAERS Safety Report 6359142-6 (Version None)
Quarter: 2009Q3

REPORT INFORMATION
  Report Type: 
  Country: None (occurrence: None)
  Receive Date: 20090917
  Receipt Date: 20090904
  Transmission Date: 20100115
  Serious: Yes (Other)
  Sender: FDA-Public Use
  Company Number: ES-RANBAXY-2009RR-27044

PATIENT
  Age: 43 Year
  Sex: Female

DRUGS (10)
  1. DIDANOSINE [Suspect]
     Indication: HIV INFECTION
     Dosage: UNK
  2. SAQUINAVIR [Suspect]
     Indication: HIV INFECTION
     Dosage: UNK
  3. INDINIVIR SULFATE [Suspect]
     Indication: HIV INFECTION
     Dosage: UNK
  4. LOPINAVIR [Suspect]
     Indication: HIV INFECTION
     Dosage: UNK
  5. NEVIRAPINE [Suspect]
     Indication: HIV INFECTION
     Dosage: UNK
  6. STAVUDINE [Suspect]
     Indication: HIV INFECTION
     Dosage: UNK
  7. LAMIVUDINE [Suspect]
     Indication: HIV INFECTION
     Dosage: UNK
  8. ZIDOVUDINE [Suspect]
     Indication: HIV INFECTION
     Dosage: UNK
  9. RITONAVIR [Suspect]
     Indication: HIV INFECTION
     Dosage: UNK
  10. TENOFOVIR [Suspect]
     Indication: HIV INFECTION
     Dosage: UNK

REACTIONS (2)
  - PORTAL HYPERTENSION [None]
  - PULMONARY HYPERTENSION [None]
